FAERS Safety Report 24101550 (Version 1)
Quarter: 2024Q3

REPORT INFORMATION
  Report Type: Report from Study
  Country: RU (occurrence: None)
  Receive Date: 20240717
  Receipt Date: 20240717
  Transmission Date: 20241017
  Serious: Yes (Hospitalization, Other)
  Sender: ASTRAZENECA
  Company Number: 2020SE13555

PATIENT
  Sex: Male

DRUGS (5)
  1. BRILINTA [Suspect]
     Active Substance: TICAGRELOR
     Indication: Myocardial infarction
     Route: 048
     Dates: start: 20191107, end: 20191227
  2. BRILINTA [Suspect]
     Active Substance: TICAGRELOR
     Indication: Myocardial infarction
     Route: 048
     Dates: start: 20200108
  3. SPIRONOLACTONE [Concomitant]
     Active Substance: SPIRONOLACTONE
  4. EPLERENONE [Concomitant]
     Active Substance: EPLERENONE
  5. TORSEMIDE [Concomitant]
     Active Substance: TORSEMIDE

REACTIONS (11)
  - Pulmonary oedema [Unknown]
  - Malaise [Not Recovered/Not Resolved]
  - Cardiac dysfunction [Unknown]
  - Myocardial infarction [Unknown]
  - Organ failure [Unknown]
  - Epistaxis [Unknown]
  - Insomnia [Unknown]
  - Dysstasia [Unknown]
  - Respiratory disorder [Recovering/Resolving]
  - Renal impairment [Unknown]
  - Oedema [Unknown]

NARRATIVE: CASE EVENT DATE: 20200108
